FAERS Safety Report 20885224 (Version 1)
Quarter: 2022Q2

REPORT INFORMATION
  Report Type: Spontaneous
  Country: NL (occurrence: NL)
  Receive Date: 20220527
  Receipt Date: 20220527
  Transmission Date: 20220720
  Serious: Yes (Hospitalization)
  Sender: FDA-Public Use
  Company Number: None

PATIENT
  Age: 37 Year
  Sex: Male
  Weight: 75 kg

DRUGS (8)
  1. OXALIPLATIN [Suspect]
     Active Substance: OXALIPLATIN
     Indication: Colon cancer metastatic
     Dosage: 5-FU CONTINUOUS VIA PICC LINE, FOLINIC ACID AND OXALIPLATIN COURSE EVERY TWO WEEKS. ,OXALIPLATINE IN
     Dates: start: 20220510, end: 20220510
  2. FLUOROURACIL [Suspect]
     Active Substance: FLUOROURACIL
     Indication: Colon cancer metastatic
     Dosage: 5-FU CONTINUOUS VIA PICC LINE, FOLINIC ACID AND OXALIPLATIN COURSE EVERY TWO WEEKS.FLUOROURACIL INJE
     Dates: start: 20220510, end: 20220510
  3. FOLIC ACID [Suspect]
     Active Substance: FOLIC ACID
     Indication: Colon cancer metastatic
     Dosage: 5-FU CONTINUOUS VIA PICC LINE, FOLINIC ACID AND OXALIPLATIN COURSE EVERY TWO WEEKS. ,FOLIC ACID INJV
     Dates: start: 20220510, end: 20220510
  4. DILTIAZEM [Concomitant]
     Active Substance: DILTIAZEM
     Dosage: MODIFIED RELEASE TABLET, 120 MG,DILTIAZEM TABLET MGA 120MG / BRAND NAME NOT SPECIFIED,THERAPY START
  5. HERBALS\PLANTAGO OVATA LEAF [Concomitant]
     Active Substance: HERBALS\PLANTAGO OVATA LEAF
     Dosage: SACHET (GRANULATE), 3.25 G (GRAM),PLANTAGO OVATA GRANULATE 3.25G / BRAND NAME NOT SPECIFIED,THERAPY
  6. ISOSORBIDE MONONITRATE [Concomitant]
     Active Substance: ISOSORBIDE MONONITRATE
     Dosage: MODIFIED-RELEASE CAPSULE, 25 MG,ISOSORBIDE MONONITRATE CAPSULE MGA 25MG / BRAND NAME NOT SPECIFIED,T
  7. BISACODYL [Concomitant]
     Active Substance: BISACODYL
     Dosage: GASTRO-RESISTANT TABLET, 5 MG,BISACODYL TABLET MSR 5MG / BRAND NAME NOT SPECIFIED,THERAPY START DATE
  8. ISOSORBIDE MONONITRATE [Concomitant]
     Active Substance: ISOSORBIDE MONONITRATE
     Dosage: MODIFIED RELEASE CAPSULE,50 MG ,ISOSORBIDE MONONITRATE CAPSULE MGA 50MG / BRAND NAME NOT SPECIFIED,T

REACTIONS (1)
  - Arteriospasm coronary [Recovered/Resolved]

NARRATIVE: CASE EVENT DATE: 20220510
